FAERS Safety Report 15895548 (Version 1)
Quarter: 2019Q1

REPORT INFORMATION
  Report Type: Spontaneous
  Country: CN (occurrence: CN)
  Receive Date: 20190131
  Receipt Date: 20190131
  Transmission Date: 20190417
  Serious: Yes (Other)
  Sender: FDA-Public Use
  Company Number: CN-PFIZER INC-2019038963

PATIENT
  Age: 78 Year
  Sex: Male
  Weight: 65 kg

DRUGS (2)
  1. SODIUM CHLORIDE. [Concomitant]
     Active Substance: SODIUM CHLORIDE
     Indication: VEHICLE SOLUTION USE
     Dosage: 250 ML, 1X/DAY
     Route: 041
     Dates: start: 20180606, end: 20180606
  2. CAMPTO [Suspect]
     Active Substance: IRINOTECAN
     Indication: GASTROINTESTINAL CARCINOMA
     Dosage: 240 MG, 1X/DAY
     Route: 041
     Dates: start: 20180606, end: 20180606

REACTIONS (5)
  - Asthenia [Recovering/Resolving]
  - Nausea [Recovering/Resolving]
  - Chest discomfort [Recovering/Resolving]
  - Blood test abnormal [Recovering/Resolving]
  - Bone marrow failure [Recovering/Resolving]

NARRATIVE: CASE EVENT DATE: 20180607
